FAERS Safety Report 7105279-3 (Version None)
Quarter: 2010Q4

REPORT INFORMATION
  Report Type: 
  Country: None (occurrence: None)
  Receive Date: 20101116
  Receipt Date: 20101103
  Transmission Date: 20110411
  Serious: No
  Sender: FDA-Public Use
  Company Number: US-B.I. PHARMACEUTICALS,INC./RIDGEFIELD-2010-BP-11626BP

PATIENT
  Age: 62 Year
  Sex: Female

DRUGS (6)
  1. MICARDIS [Suspect]
     Indication: HYPERTENSION
     Dosage: 80 MG
     Route: 048
     Dates: start: 20101006, end: 20101015
  2. ZOCOR [Concomitant]
     Dosage: 40 MG
  3. WELLBUTRIN SR [Concomitant]
     Dosage: 300 MG
  4. MOTRIN [Concomitant]
     Dosage: 1200 MG
  5. VALIUM [Concomitant]
  6. VICODIN [Concomitant]

REACTIONS (3)
  - DIARRHOEA [None]
  - DISCOMFORT [None]
  - VOMITING [None]
